FAERS Safety Report 9300787 (Version 1)
Quarter: 2013Q2

REPORT INFORMATION
  Report Type: Spontaneous
  Country: FR (occurrence: FR)
  Receive Date: 20130521
  Receipt Date: 20130521
  Transmission Date: 20140414
  Serious: Yes (Hospitalization, Disabling, Other)
  Sender: FDA-Public Use
  Company Number: FR-PFIZER INC-2009276688

PATIENT
  Age: 44 Year
  Sex: Female

DRUGS (2)
  1. MEDROL [Suspect]
     Indication: PREMEDICATION
     Dosage: 300 MG, UNK
     Route: 048
  2. TAXOTERE [Suspect]
     Indication: BREAST CANCER
     Dosage: 200 MG, UNK
     Route: 042
     Dates: start: 20090611, end: 20090611

REACTIONS (2)
  - Hypersensitivity [Recovered/Resolved]
  - Blindness [Unknown]
